FAERS Safety Report 4269363-4 (Version None)
Quarter: 2004Q1

REPORT INFORMATION
  Report Type: 
  Country: None (occurrence: None)
  Receive Date: 20040108
  Receipt Date: 20031223
  Transmission Date: 20041129
  Serious: Yes (Hospitalization)
  Sender: FDA-Public Use
  Company Number: DSA_23790_2003

PATIENT
  Age: 77 Year
  Sex: Male

DRUGS (5)
  1. ENALAPRIL MALEATE [Suspect]
     Indication: HYPERTENSION
     Dosage: 30 MG DAILY PO
     Route: 048
  2. ENALAPRIL MALEATE [Suspect]
     Indication: HYPERTENSION
  3. AMLODIPINE BESYLATE [Concomitant]
  4. CLONIDINE HCL [Concomitant]
  5. ASPIRIN [Concomitant]

REACTIONS (9)
  - ANGIONEUROTIC OEDEMA [None]
  - DYSPHAGIA [None]
  - DYSPHONIA [None]
  - DYSPNOEA [None]
  - EPIGLOTTIC OEDEMA [None]
  - LARYNGEAL OEDEMA [None]
  - LOCAL SWELLING [None]
  - PHARYNGEAL OEDEMA [None]
  - SWOLLEN TONGUE [None]
